FAERS Safety Report 25476689 (Version 1)
Quarter: 2025Q2

REPORT INFORMATION
  Report Type: Spontaneous
  Country: US (occurrence: US)
  Receive Date: 20250625
  Receipt Date: 20250625
  Transmission Date: 20250717
  Serious: Yes (Hospitalization, Other)
  Sender: CSL BEHRING
  Company Number: US-BEH-2025210063

PATIENT
  Age: 21 Year
  Sex: Male

DRUGS (4)
  1. IDELVION [Suspect]
     Active Substance: COAGULATION FACTOR IX RECOMBINANT HUMAN
     Indication: Factor IX deficiency
     Dosage: 828 IU, QW
     Route: 042
     Dates: start: 202405
  2. IDELVION [Suspect]
     Active Substance: COAGULATION FACTOR IX RECOMBINANT HUMAN
     Indication: Factor IX deficiency
     Dosage: 828 IU, QW
     Route: 042
     Dates: start: 202405
  3. IDELVION [Suspect]
     Active Substance: COAGULATION FACTOR IX RECOMBINANT HUMAN
     Dosage: 2000 IU, QW
     Route: 042
     Dates: start: 202405
  4. IDELVION [Suspect]
     Active Substance: COAGULATION FACTOR IX RECOMBINANT HUMAN
     Dosage: 2000 IU, QW
     Route: 042
     Dates: start: 202405

REACTIONS (3)
  - Urinary tract infection [Unknown]
  - Haemorrhage [Unknown]
  - Blood urine present [Unknown]

NARRATIVE: CASE EVENT DATE: 20250530
